FAERS Safety Report 15366348 (Version 1)
Quarter: 2018Q3

REPORT INFORMATION
  Report Type: Spontaneous
  Country: US (occurrence: US)
  Receive Date: 20180831
  Receipt Date: 20180831
  Transmission Date: 20181010
  Serious: Yes (Hospitalization)
  Sender: FDA-Public Use
  Company Number: None

PATIENT
  Age: 83 Year
  Sex: Male
  Weight: 70 kg

DRUGS (17)
  1. ALLOPURINOL 300 MG [Concomitant]
     Active Substance: ALLOPURINOL
  2. DILTIAZEM XR 240 MG [Concomitant]
  3. LOMOTIL [Concomitant]
     Active Substance: ATROPINE SULFATE\DIPHENOXYLATE HYDROCHLORIDE
  4. THIAMINE 100 MG [Concomitant]
  5. FIBER TABLETS [Concomitant]
  6. MULTIVITAMINS [Concomitant]
     Active Substance: VITAMINS
  7. APIXABAN [Suspect]
     Active Substance: APIXABAN
     Indication: ATRIAL FIBRILLATION
     Route: 048
  8. BRINZOLAMIDE/BRIMONIDINE [Concomitant]
     Active Substance: BRIMONIDINE TARTRATE\BRINZOLAMIDE
  9. CHOLECALCIFEROL 500 UNITS [Concomitant]
  10. VICODIN 5/325 [Concomitant]
  11. RIBOFLAVIN 100 MG [Concomitant]
  12. CYANOCOBALAMIN 1000 MG [Concomitant]
  13. TIMOLOL 0.25% [Concomitant]
  14. FERROUS SULFATE 325 MG [Concomitant]
  15. LEVOTHYROXINE 125 MCG [Concomitant]
     Active Substance: LEVOTHYROXINE SODIUM
  16. FOLIC ACID 400 MCG [Concomitant]
  17. LATANOPROST 0.005% [Concomitant]
     Active Substance: LATANOPROST

REACTIONS (7)
  - Asthenia [None]
  - Dizziness postural [None]
  - Hypotension [None]
  - Rectal haemorrhage [None]
  - Blood creatinine increased [None]
  - Haematochezia [None]
  - Haemoglobin decreased [None]

NARRATIVE: CASE EVENT DATE: 20180720
